FAERS Safety Report 5486444-8 (Version None)
Quarter: 2007Q4

REPORT INFORMATION
  Report Type: 
  Country: None (occurrence: None)
  Receive Date: 20071016
  Receipt Date: 20071010
  Transmission Date: 20080405
  Serious: Yes (Life-Threatening, Hospitalization, Other)
  Sender: FDA-Public Use
  Company Number: A0682117A

PATIENT
  Age: 21 Year
  Sex: Female
  Weight: 61.8 kg

DRUGS (2)
  1. LAMICTAL [Suspect]
     Indication: DEPRESSION
     Dosage: 50MG PER DAY
     Route: 048
     Dates: start: 20070805, end: 20070101
  2. IRON [Concomitant]
     Route: 048

REACTIONS (7)
  - OCULAR HYPERAEMIA [None]
  - PAIN [None]
  - PHARMACEUTICAL PRODUCT COMPLAINT [None]
  - RASH VESICULAR [None]
  - SKIN EXFOLIATION [None]
  - STEVENS-JOHNSON SYNDROME [None]
  - URINARY TRACT INFECTION [None]
